APPROVED DRUG PRODUCT: TERBUTALINE SULFATE
Active Ingredient: TERBUTALINE SULFATE
Strength: 1MG/ML
Dosage Form/Route: INJECTABLE;INJECTION
Application: A076853 | Product #001
Applicant: DR REDDYS LABORATORIES LTD
Approved: Jul 20, 2004 | RLD: No | RS: No | Type: DISCN